FAERS Safety Report 13206754 (Version 1)
Quarter: 2017Q1

REPORT INFORMATION
  Report Type: Spontaneous
  Country: US (occurrence: US)
  Receive Date: 20170208
  Receipt Date: 20170208
  Transmission Date: 20170428
  Serious: No
  Sender: FDA-Public Use
  Company Number: US-AMGEN-USASP2016138645

PATIENT

DRUGS (2)
  1. NEULASTA [Suspect]
     Active Substance: PEGFILGRASTIM
     Indication: PRODUCT USED FOR UNKNOWN INDICATION
     Dosage: UNK
     Route: 065
  2. CLARITIN [Concomitant]
     Active Substance: LORATADINE
     Dosage: FOR THREE DAYS BEFORE CHEMO AND THREE DAYS AFTER
     Route: 065

REACTIONS (5)
  - Alopecia [Unknown]
  - Insomnia [Unknown]
  - Myalgia [Unknown]
  - Injury [Unknown]
  - Bone pain [Unknown]
